FAERS Safety Report 24651046 (Version 1)
Quarter: 2024Q4

REPORT INFORMATION
  Report Type: Spontaneous
  Country: US (occurrence: US)
  Receive Date: 20241122
  Receipt Date: 20241122
  Transmission Date: 20250114
  Serious: Yes (Death)
  Sender: CHEPLAPHARM
  Company Number: US-CHEPLA-2024014648

PATIENT
  Sex: Female

DRUGS (1)
  1. CLONAZEPAM [Suspect]
     Active Substance: CLONAZEPAM
     Dosage: TAKING IT 2X/WEEK

REACTIONS (4)
  - Death [Fatal]
  - Conversion disorder [Fatal]
  - Akathisia [Fatal]
  - Dystonia [Fatal]

NARRATIVE: CASE EVENT DATE: 20240301
